FAERS Safety Report 4279527-1 (Version None)
Quarter: 2004Q1

REPORT INFORMATION
  Report Type: 
  Country: None (occurrence: None)
  Receive Date: 20040126
  Receipt Date: 20040126
  Transmission Date: 20041129
  Serious: Yes (Hospitalization)
  Sender: FDA-Public Use
  Company Number: None

PATIENT
  Age: 72 Year
  Sex: Male
  Weight: 65.318 kg

DRUGS (3)
  1. PROCRIT 40,000 ORTHO-BIOTECH [Suspect]
     Indication: ANAEMIA
     Dosage: 40,000 WEEKLY SUBCUTANEOUS
     Route: 058
     Dates: start: 20031229, end: 20040410
  2. CARBOPLANTIN [Concomitant]
  3. TAXOL [Concomitant]

REACTIONS (3)
  - DEHYDRATION [None]
  - INAPPROPRIATE ANTIDIURETIC HORMONE SECRETION [None]
  - URINARY RETENTION [None]
